FAERS Safety Report 18911472 (Version 1)
Quarter: 2021Q1

REPORT INFORMATION
  Report Type: Spontaneous
  Country: US (occurrence: US)
  Receive Date: 20210218
  Receipt Date: 20210218
  Transmission Date: 20210420
  Serious: No
  Sender: FDA-Public Use
  Company Number: US-SA-2021SA051007

PATIENT
  Sex: Female

DRUGS (14)
  1. FUROSIN [FUROSEMIDE] [Concomitant]
     Dosage: 20MG
  2. PRAMIPEXOLE. [Concomitant]
     Active Substance: PRAMIPEXOLE
     Dosage: 1MG
  3. AMITRIPTYLINE [Concomitant]
     Active Substance: AMITRIPTYLINE
  4. DUPIXENT [Suspect]
     Active Substance: DUPILUMAB
     Indication: DERMATITIS ATOPIC
     Dosage: 300 MG, QOW
     Route: 058
     Dates: start: 202012
  5. DUTASTERIDE. [Concomitant]
     Active Substance: DUTASTERIDE
     Dosage: 06MG
  6. FINASTERIDE. [Concomitant]
     Active Substance: FINASTERIDE
     Dosage: 25MG
  7. TIZANIDINE. [Concomitant]
     Active Substance: TIZANIDINE
     Dosage: 4MG
  8. VIVELLE?DOT [Concomitant]
     Active Substance: ESTRADIOL
     Dosage: 4MG
  9. DUPIXENT [Suspect]
     Active Substance: DUPILUMAB
     Indication: PRODUCT USED FOR UNKNOWN INDICATION
  10. COLCHICINE. [Concomitant]
     Active Substance: COLCHICINE
     Dosage: 06MG
  11. LATISSE [Concomitant]
     Active Substance: BIMATOPROST
     Dosage: 10MG
  12. MONTELUKAST [Concomitant]
     Active Substance: MONTELUKAST SODIUM
     Dosage: 05MG
  13. ZOLPIDEM [Concomitant]
     Active Substance: ZOLPIDEM TARTRATE
     Dosage: 5MG
  14. ESTRING [Concomitant]
     Active Substance: ESTRADIOL
     Dosage: 20MG

REACTIONS (8)
  - Injection site pain [Recovered/Resolved]
  - Rash [Recovered/Resolved]
  - Gait disturbance [Recovered/Resolved]
  - Skin discolouration [Recovered/Resolved]
  - Injection site warmth [Recovered/Resolved]
  - Peripheral swelling [Recovered/Resolved]
  - Pain [Recovered/Resolved]
  - Injection site mass [Recovered/Resolved]
